FAERS Safety Report 21741277 (Version 6)
Quarter: 2024Q1

REPORT INFORMATION
  Report Type: Spontaneous
  Country: US (occurrence: US)
  Receive Date: 20221216
  Receipt Date: 20240124
  Transmission Date: 20240410
  Serious: No
  Sender: FDA-Public Use
  Company Number: US-PFIZER INC-PV202200124568

PATIENT
  Age: 83 Year
  Sex: Female

DRUGS (3)
  1. IBRANCE [Suspect]
     Active Substance: PALBOCICLIB
     Indication: Hormone receptor positive breast cancer
     Dosage: 125 MG
  2. IBRANCE [Suspect]
     Active Substance: PALBOCICLIB
     Dosage: 125 MG, CYCLIC, (TAKE 1 DAILY FOR 21 DAYS 7 DAYS OFF)
     Route: 048
  3. IBRANCE [Suspect]
     Active Substance: PALBOCICLIB
     Dosage: 100 MG

REACTIONS (11)
  - Neoplasm progression [Unknown]
  - Nail bed inflammation [Unknown]
  - Onychomadesis [Unknown]
  - Abdominal pain upper [Unknown]
  - Feeling cold [Unknown]
  - Fatigue [Unknown]
  - Therapeutic response unexpected [Unknown]
  - Vertigo [Unknown]
  - Ear disorder [Unknown]
  - Illness [Unknown]
  - Nervousness [Unknown]
